FAERS Safety Report 5830710-0 (Version None)
Quarter: 2008Q3

REPORT INFORMATION
  Report Type: 
  Country: None (occurrence: None)
  Receive Date: 20080801
  Receipt Date: 20071018
  Transmission Date: 20090109
  Serious: No
  Sender: FDA-Public Use
  Company Number: US-BRISTOL-MYERS SQUIBB COMPANY-13946561

PATIENT
  Sex: Male

DRUGS (4)
  1. COUMADIN [Suspect]
     Indication: FEMUR FRACTURE
  2. COMBIVENT [Concomitant]
  3. FLOVENT [Concomitant]
  4. FORADIL [Concomitant]

REACTIONS (1)
  - DIZZINESS [None]
